FAERS Safety Report 25068443 (Version 1)
Quarter: 2025Q1

REPORT INFORMATION
  Report Type: Spontaneous
  Country: US (occurrence: None)
  Receive Date: 20250312
  Receipt Date: 20250312
  Transmission Date: 20250408
  Serious: Yes (Hospitalization)
  Sender: FDA-CTU
  Company Number: None

PATIENT
  Sex: Female

DRUGS (18)
  1. TEMOZOLOMIDE [Suspect]
     Active Substance: TEMOZOLOMIDE
     Indication: Brain neoplasm malignant
     Dosage: FREQUENCY : DAILY;?
     Route: 048
     Dates: start: 20240711
  2. ALBUTEROL AER HFA [Concomitant]
  3. ALBUTEROL SULFATE [Concomitant]
     Active Substance: ALBUTEROL SULFATE
  4. DEXAMETHASON TAB 2MG [Concomitant]
  5. DEXAMETHASONE [Concomitant]
     Active Substance: DEXAMETHASONE
  6. FAMOTIDINE [Concomitant]
     Active Substance: FAMOTIDINE
  7. KEPPRA TAB 1000MG [Concomitant]
  8. LACOSAMIDE TAB 100MG [Concomitant]
  9. LACOSAMIDE TAB 50MG [Concomitant]
  10. LEVETIRACETA TAB 1000MG [Concomitant]
  11. LEVETIRACETA TAB 500MG [Concomitant]
  12. ONDANSETRON [Concomitant]
     Active Substance: ONDANSETRON
  13. ALBUTEROL NEB 0.083% [Concomitant]
  14. NALOXONE HCL SPR 4MG [Concomitant]
  15. QUETIAPINE [Concomitant]
     Active Substance: QUETIAPINE
  16. VALACYCLQVIR TAB 1GM [Concomitant]
  17. PROCHLORPER TAB 5MG [Concomitant]
  18. TEMOZOLOMIDE [Concomitant]
     Active Substance: TEMOZOLOMIDE

REACTIONS (1)
  - Hospitalisation [None]
